FAERS Safety Report 9845301 (Version 1)
Quarter: 2014Q1

REPORT INFORMATION
  Report Type: Spontaneous
  Country: US (occurrence: US)
  Receive Date: 20140127
  Receipt Date: 20140127
  Transmission Date: 20141002
  Serious: No
  Sender: FDA-Public Use
  Company Number: US-BAUSCH-BL-2013-004555

PATIENT
  Age: 76 Year
  Sex: Male

DRUGS (2)
  1. ZYLET (LOTEPREDNOL ETABONATE 0.5% AND TOBRAMYCIN 0.3% OPHTHALMIC SUSPE [Suspect]
     Indication: OCULAR DISCOMFORT
     Dosage: 1 DROP IN LEFT EYE, FOUR TIMES PER DAY
     Route: 047
     Dates: start: 20130719, end: 20130726
  2. LUMIGAN [Concomitant]

REACTIONS (4)
  - Off label use [Recovered/Resolved]
  - Vision blurred [Not Recovered/Not Resolved]
  - Eye pain [Not Recovered/Not Resolved]
  - Macular oedema [Not Recovered/Not Resolved]
